FAERS Safety Report 16405211 (Version 1)
Quarter: 2019Q2

REPORT INFORMATION
  Report Type: Spontaneous
  Country: US (occurrence: US)
  Receive Date: 20190607
  Receipt Date: 20190607
  Transmission Date: 20190711
  Serious: No
  Sender: FDA-Public Use
  Company Number: US-GLAXOSMITHKLINE-US2019AMR100829

PATIENT

DRUGS (1)
  1. BENLYSTA [Suspect]
     Active Substance: BELIMUMAB
     Indication: PRODUCT USED FOR UNKNOWN INDICATION
     Dosage: UNK

REACTIONS (8)
  - Chest pain [Unknown]
  - Pain [Unknown]
  - Rash [Unknown]
  - Joint stiffness [Unknown]
  - Therapeutic product effect incomplete [Unknown]
  - Neck pain [Unknown]
  - Productive cough [Unknown]
  - Product dose omission [Unknown]
